FAERS Safety Report 11613438 (Version 2)
Quarter: 2015Q4

REPORT INFORMATION
  Report Type: Report from Study
  Country: FR (occurrence: FR)
  Receive Date: 20151008
  Receipt Date: 20151126
  Transmission Date: 20160304
  Serious: Yes (Death, Hospitalization, Other)
  Sender: FDA-Public Use
  Company Number: FR-BRISTOL-MYERS SQUIBB COMPANY-BMS-2015-065280

PATIENT
  Age: 82 Year
  Sex: Male
  Weight: 90 kg

DRUGS (7)
  1. TAMSULOSINE [Concomitant]
     Active Substance: TAMSULOSIN HYDROCHLORIDE
     Indication: PROSTATIC ADENOMA
     Dosage: 0.4 MG, QD
     Route: 048
     Dates: start: 2015
  2. METFORMIN [Concomitant]
     Active Substance: METFORMIN HYDROCHLORIDE
     Indication: PROSTATIC ADENOMA
     Dosage: 700 MG, TID
     Route: 065
     Dates: start: 2004
  3. SOTALOL. [Concomitant]
     Active Substance: SOTALOL
     Indication: HYPERTENSION
     Dosage: 80 MG, QD
     Route: 048
     Dates: start: 2015
  4. NIVOLUMAB [Suspect]
     Active Substance: NIVOLUMAB
     Indication: NON-SMALL CELL LUNG CANCER
     Dosage: 280 MG, UNK
     Route: 065
     Dates: start: 20150716
  5. METFORMIN [Concomitant]
     Active Substance: METFORMIN HYDROCHLORIDE
     Indication: DIABETES MELLITUS
  6. HUMAN INSULIN [Concomitant]
     Active Substance: INSULIN HUMAN
     Indication: PROSTATIC ADENOMA
     Dosage: 8 IU, QD
     Route: 065
  7. GLIMEPIRIDE. [Concomitant]
     Active Substance: GLIMEPIRIDE
     Indication: PROSTATIC ADENOMA
     Dosage: 1 MG, QD
     Route: 048

REACTIONS (12)
  - Death [Fatal]
  - Anaemia [Not Recovered/Not Resolved]
  - Erythema [Not Recovered/Not Resolved]
  - Lymphocyte count abnormal [Unknown]
  - Pleural effusion [Not Recovered/Not Resolved]
  - Aspiration pleural cavity [Unknown]
  - Leukopenia [Recovered/Resolved]
  - Neutropenia [Recovered/Resolved]
  - Asthenia [Recovered/Resolved]
  - Dyspnoea exertional [Not Recovered/Not Resolved]
  - Depression [Unknown]
  - Creatinine renal clearance abnormal [Recovering/Resolving]

NARRATIVE: CASE EVENT DATE: 20150722
